FAERS Safety Report 6603273-X (Version None)
Quarter: 2010Q1

REPORT INFORMATION
  Report Type: 
  Country: None (occurrence: None)
  Receive Date: 20100226
  Receipt Date: 20100219
  Transmission Date: 20100710
  Serious: Yes (Hospitalization, Other)
  Sender: FDA-Public Use
  Company Number: US-BAXTER-2010BH002694

PATIENT
  Age: 30 Year
  Sex: Female

DRUGS (1)
  1. DIANEAL [Suspect]
     Indication: PERITONEAL DIALYSIS
     Route: 033

REACTIONS (5)
  - BLOOD CALCIUM DECREASED [None]
  - CONVULSION [None]
  - DECREASED APPETITE [None]
  - NAUSEA [None]
  - VOMITING [None]
